FAERS Safety Report 8773342 (Version 1)
Quarter: 2012Q4

REPORT INFORMATION
  Report Type: 
  Country: US (occurrence: US)
  Receive Date: 20120907
  Receipt Date: 20120907
  Transmission Date: 20130627
  Serious: No
  Sender: FDA-Public Use
  Company Number: US-ASTRAZENECA-2012SE60562

PATIENT
  Age: 67 Year
  Sex: Male
  Weight: 79.4 kg

DRUGS (4)
  1. PULMICORT FLEXHALER [Suspect]
     Indication: ASBESTOSIS
     Route: 055
     Dates: start: 20120808
  2. PROAIR [Concomitant]
     Indication: ASBESTOSIS
  3. ASPIRIN [Concomitant]
     Indication: CARDIAC DISORDER
  4. METFORMIN [Concomitant]
     Indication: DIABETES MELLITUS

REACTIONS (3)
  - Dyspnoea [Not Recovered/Not Resolved]
  - Off label use [Not Recovered/Not Resolved]
  - Off label use [Not Recovered/Not Resolved]
